FAERS Safety Report 25826277 (Version 2)
Quarter: 2025Q4

REPORT INFORMATION
  Report Type: Spontaneous
  Country: US (occurrence: None)
  Receive Date: 20250919
  Receipt Date: 20251121
  Transmission Date: 20260117
  Serious: No
  Sender: Harrow Health
  Company Number: US-HARROW-HAR-2025-US-00308

PATIENT
  Age: 84 Year
  Sex: Male

DRUGS (1)
  1. VEVYE [Suspect]
     Active Substance: CYCLOSPORINE
     Route: 047
     Dates: start: 20250614, end: 20250615

REACTIONS (2)
  - Eye irritation [Unknown]
  - Eye pain [Unknown]

NARRATIVE: CASE EVENT DATE: 20250614
